FAERS Safety Report 11196371 (Version 1)
Quarter: 2015Q2

REPORT INFORMATION
  Report Type: Spontaneous
  Country: US (occurrence: US)
  Receive Date: 20150617
  Receipt Date: 20150617
  Transmission Date: 20150821
  Serious: Yes (Other)
  Sender: FDA-Public Use
  Company Number: US-GE HEALTHCARE MEDICAL DIAGNOSTICS-OSCN-PR-0805S-0259

PATIENT
  Age: 12 Year
  Sex: Female

DRUGS (2)
  1. GADOLINIUM (UNSPECIFIED) [Suspect]
     Active Substance: GADOLINIUM
     Indication: DIZZINESS
     Route: 042
     Dates: start: 20030426, end: 20030426
  2. GADOLINIUM (UNSPECIFIED) [Suspect]
     Active Substance: GADOLINIUM
     Indication: DIAGNOSTIC PROCEDURE

REACTIONS (7)
  - Pollakiuria [Not Recovered/Not Resolved]
  - Myalgia [Not Recovered/Not Resolved]
  - Skin fibrosis [Not Recovered/Not Resolved]
  - Musculoskeletal chest pain [Not Recovered/Not Resolved]
  - Joint lock [Not Recovered/Not Resolved]
  - Arthralgia [Not Recovered/Not Resolved]
  - Rash [Not Recovered/Not Resolved]
